FAERS Safety Report 8691942 (Version 2)
Quarter: 2014Q3

REPORT INFORMATION
  Report Type: Spontaneous
  Country: US (occurrence: US)
  Receive Date: 20120730
  Receipt Date: 20140804
  Transmission Date: 20150326
  Serious: Yes (Hospitalization, Other)
  Sender: FDA-Public Use
  Company Number: US-009507513-1207USA007496

PATIENT
  Sex: Female

DRUGS (1)
  1. NUVARING [Suspect]
     Active Substance: ETHINYL ESTRADIOL\ETONOGESTREL
     Dosage: UNK
     Dates: start: 20100115

REACTIONS (7)
  - Gastric banding [Unknown]
  - Cholecystectomy [Unknown]
  - Pulmonary embolism [Unknown]
  - Anaemia [Unknown]
  - Gastric bypass [Unknown]
  - Sleep apnoea syndrome [Unknown]
  - Gastrooesophageal reflux disease [Unknown]

NARRATIVE: CASE EVENT DATE: 201007
